FAERS Safety Report 4816192-6 (Version None)
Quarter: 2005Q4

REPORT INFORMATION
  Report Type: 
  Country: None (occurrence: None)
  Receive Date: 20051025
  Receipt Date: 20050926
  Transmission Date: 20060501
  Serious: Yes (Hospitalization)
  Sender: FDA-Public Use
  Company Number: WSDF_00495

PATIENT
  Age: 7 Year
  Sex: Male
  Weight: 20 kg

DRUGS (3)
  1. WINRHO SDF [Suspect]
     Indication: IDIOPATHIC THROMBOCYTOPENIC PURPURA
     Dosage: 50 MCG/KG ONCE IV
     Route: 042
     Dates: start: 20050918, end: 20050918
  2. ACETAMINOPHEN [Concomitant]
  3. DIPHENHYDRAMINE ELIXIR [Concomitant]

REACTIONS (9)
  - ANAPHYLACTIC REACTION [None]
  - DIZZINESS [None]
  - HAEMATOCRIT DECREASED [None]
  - HEADACHE [None]
  - LYMPHOCYTE PERCENTAGE INCREASED [None]
  - MONOCYTE PERCENTAGE INCREASED [None]
  - NEUTROPHIL PERCENTAGE DECREASED [None]
  - VOMITING [None]
  - WHITE BLOOD CELL COUNT INCREASED [None]
